FAERS Safety Report 5766716-X (Version None)
Quarter: 2008Q2

REPORT INFORMATION
  Report Type: 
  Country: None (occurrence: None)
  Receive Date: 20080610
  Receipt Date: 20080610
  Transmission Date: 20081010
  Serious: Yes (Other)
  Sender: FDA-Public Use
  Company Number: None

PATIENT
  Age: 90 Year
  Sex: Female
  Weight: 55 kg

DRUGS (1)
  1. FLUCONAZOLE [Suspect]
     Indication: ORAL CANDIDIASIS
     Dosage: 400 MG ONCE PO 200 MG DAILY PO
     Route: 048
     Dates: start: 20080310, end: 20080313

REACTIONS (3)
  - GAIT DISTURBANCE [None]
  - MUSCLE SPASTICITY [None]
  - NEUROPATHY PERIPHERAL [None]
